FAERS Safety Report 12839709 (Version 1)
Quarter: 2016Q4

REPORT INFORMATION
  Report Type: Spontaneous
  Country: US (occurrence: US)
  Receive Date: 20161012
  Receipt Date: 20161012
  Transmission Date: 20170207
  Serious: No
  Sender: FDA-Public Use
  Company Number: None

PATIENT
  Age: 61 Year
  Sex: Male

DRUGS (1)
  1. SILDENAFIL 20 MG [Suspect]
     Active Substance: SILDENAFIL
     Indication: CHOLERA
     Dosage: 20 MG THREE TIMES A DAY ORAL??RECENT
     Route: 048
     Dates: start: 20160728

REACTIONS (1)
  - Death [None]

NARRATIVE: CASE EVENT DATE: 20161012
